FAERS Safety Report 18219362 (Version 2)
Quarter: 2021Q2

REPORT INFORMATION
  Report Type: Spontaneous
  Country: AU (occurrence: AU)
  Receive Date: 20200901
  Receipt Date: 20210407
  Transmission Date: 20210717
  Serious: Yes (Other)
  Sender: FDA-Public Use
  Company Number: AU-PFIZER INC-2020337797

PATIENT
  Age: 35 Year
  Sex: Male

DRUGS (9)
  1. CLOXACILLIN [Concomitant]
     Active Substance: CLOXACILLIN
     Indication: STAPHYLOCOCCAL INFECTION
     Dosage: UNK
  2. GENTAMICIN. [Concomitant]
     Active Substance: GENTAMICIN
     Indication: STAPHYLOCOCCAL INFECTION
     Dosage: UNK
     Route: 042
  3. LIDOCAINE HCL [Suspect]
     Active Substance: LIDOCAINE HYDROCHLORIDE
     Indication: SPINAL ANAESTHESIA
     Dosage: HEAVY LIGNOCAINE 5% ONCE
  4. BUPIVACAINE. [Suspect]
     Active Substance: BUPIVACAINE
     Dosage: 0.5 % ONCE
     Route: 037
  5. CLOXACILLIN [Concomitant]
     Active Substance: CLOXACILLIN
     Indication: STREPTOCOCCUS TEST POSITIVE
  6. PENICILLIN [Concomitant]
     Active Substance: PENICILLIN
     Indication: STREPTOCOCCUS TEST POSITIVE
  7. GENTAMICIN. [Concomitant]
     Active Substance: GENTAMICIN
     Indication: STREPTOCOCCUS TEST POSITIVE
  8. CINCHOCAINE [Suspect]
     Active Substance: DIBUCAINE
     Indication: SPINAL ANAESTHESIA
     Dosage: HEAVY CINCHOCAINE 0.5% ON THREE OCCASIONS
  9. PENICILLIN [Concomitant]
     Active Substance: PENICILLIN
     Indication: STAPHYLOCOCCAL INFECTION
     Dosage: UNK

REACTIONS (1)
  - Extradural abscess [Recovered/Resolved]
